FAERS Safety Report 9193386 (Version 1)
Quarter: 2013Q1

REPORT INFORMATION
  Report Type: Spontaneous
  Country: DE (occurrence: DE)
  Receive Date: 20130327
  Receipt Date: 20130327
  Transmission Date: 20140127
  Serious: Yes (Hospitalization, Other)
  Sender: FDA-Public Use
  Company Number: DE-ROXANE LABORATORIES, INC.-2013-RO-00417RO

PATIENT
  Age: 66 Year
  Sex: Male

DRUGS (6)
  1. LITHIUM CARBONATE [Suspect]
     Dosage: 600 MG
  2. QUETIAPINE FUMARATE [Suspect]
     Dosage: 25 MG
  3. HALOPERIDOL [Suspect]
  4. MIANSERIN [Concomitant]
     Dosage: 10 MG
  5. TAMSULOSIN [Concomitant]
     Dosage: 0.4 MG
  6. ALLOPURINOL [Concomitant]
     Dosage: 150 MG

REACTIONS (3)
  - Delirium [Unknown]
  - Status epilepticus [Recovered/Resolved]
  - Vascular dementia [Not Recovered/Not Resolved]
